FAERS Safety Report 10376206 (Version 1)
Quarter: 2014Q3

REPORT INFORMATION
  Report Type: Spontaneous
  Country: US (occurrence: US)
  Receive Date: 20140811
  Receipt Date: 20140811
  Transmission Date: 20150326
  Serious: No
  Sender: FDA-Public Use
  Company Number: US-ASTRAZENECA-2013SE66799

PATIENT
  Age: 54 Year
  Sex: Female
  Weight: 72.6 kg

DRUGS (4)
  1. ARIMIDEX [Suspect]
     Active Substance: ANASTROZOLE
     Route: 048
     Dates: start: 2011
  2. STEROID INJECTIONS [Concomitant]
     Indication: ARTHRITIS
     Dosage: NOT SPECIFIED
  3. NAPROXEN. [Concomitant]
     Active Substance: NAPROXEN
     Indication: PAIN
     Dosage: NOT SPECIFIED
  4. LIPITOR [Concomitant]
     Active Substance: ATORVASTATIN CALCIUM
     Indication: BLOOD CHOLESTEROL ABNORMAL
     Dosage: NOT SPECIFIED

REACTIONS (8)
  - Alopecia [Unknown]
  - Mobility decreased [Unknown]
  - Hot flush [Unknown]
  - Bone pain [Unknown]
  - Arthritis [Unknown]
  - Blood cholesterol increased [Unknown]
  - Back disorder [Unknown]
  - Arthralgia [Unknown]
